FAERS Safety Report 15664324 (Version 1)
Quarter: 2018Q4

REPORT INFORMATION
  Report Type: Spontaneous
  Country: US (occurrence: US)
  Receive Date: 20181127
  Receipt Date: 20181127
  Transmission Date: 20190205
  Serious: No
  Sender: FDA-Public Use
  Company Number: None

PATIENT
  Age: 55 Year
  Sex: Female
  Weight: 51.75 kg

DRUGS (1)
  1. FLONASE [Suspect]
     Active Substance: FLUTICASONE PROPIONATE
     Indication: RHINITIS ALLERGIC
     Dosage: ?          OTHER ROUTE:NASAL SPRAY?
     Dates: start: 20160901, end: 20181122

REACTIONS (8)
  - Dyspnoea [None]
  - Swollen tongue [None]
  - Oral candidiasis [None]
  - Cough [None]
  - Chest discomfort [None]
  - Back pain [None]
  - Eye irritation [None]
  - Eye disorder [None]

NARRATIVE: CASE EVENT DATE: 20181123
